FAERS Safety Report 6581678-3 (Version None)
Quarter: 2010Q1

REPORT INFORMATION
  Report Type: 
  Country: None (occurrence: None)
  Receive Date: 20100211
  Receipt Date: 20100211
  Transmission Date: 20100710
  Serious: No
  Sender: FDA-Public Use
  Company Number: None

PATIENT
  Sex: Female

DRUGS (1)
  1. ZANAFLEX [Suspect]

REACTIONS (3)
  - PAIN [None]
  - PRODUCT SUBSTITUTION ISSUE [None]
  - RASH [None]
